FAERS Safety Report 5272512-2 (Version None)
Quarter: 2007Q1

REPORT INFORMATION
  Report Type: 
  Country: None (occurrence: None)
  Receive Date: 20070322
  Receipt Date: 20060802
  Transmission Date: 20070707
  Serious: No
  Sender: FDA-Public Use
  Company Number: US-BRISTOL-MYERS SQUIBB COMPANY-13464284

PATIENT
  Age: 17 Year
  Sex: Male
  Weight: 70 kg

DRUGS (1)
  1. KENALOG [Suspect]
     Indication: MENISCUS LESION
     Dosage: ONE INJ. OF KENALOG FOR INTO R. KNEE (01-NOV-2005, 09-NOV-2005, 05-APR-2006).
     Dates: start: 20051101, end: 20060405

REACTIONS (3)
  - JOINT EFFUSION [None]
  - SYNOVIAL CYST [None]
  - SYNOVITIS [None]
